FAERS Safety Report 21247026 (Version 5)
Quarter: 2023Q2

REPORT INFORMATION
  Report Type: Report from Study
  Country: US (occurrence: US)
  Receive Date: 20220824
  Receipt Date: 20230525
  Transmission Date: 20230721
  Serious: No
  Sender: FDA-Public Use
  Company Number: US-NOVARTISTESTPH-NVSC2022US187077

PATIENT
  Sex: Female

DRUGS (4)
  1. VIJOICE [Suspect]
     Active Substance: ALPELISIB
     Indication: PIK3CA related overgrowth spectrum
     Dosage: 50 MG, QD
     Route: 048
     Dates: start: 20220701, end: 20230111
  2. VIJOICE [Suspect]
     Active Substance: ALPELISIB
     Dosage: 50 MG, QD (TAKING 2 TABLETS FOR 100MG/DAY UNTIL 125MG ARRIVES)
     Route: 048
     Dates: start: 202208
  3. VIJOICE [Suspect]
     Active Substance: ALPELISIB
     Dosage: 50 MG, QD, (125MG DAILY OF 50MG TABLETS)
     Route: 048
     Dates: start: 202208
  4. VIJOICE [Suspect]
     Active Substance: ALPELISIB
     Dosage: 50 MG, QD
     Route: 048
     Dates: start: 202202

REACTIONS (5)
  - Limb injury [Unknown]
  - Pain in extremity [Unknown]
  - Alopecia [Unknown]
  - Abdominal discomfort [Unknown]
  - Nausea [Unknown]

NARRATIVE: CASE EVENT DATE: 20220101
